FAERS Safety Report 16377767 (Version 2)
Quarter: 2019Q2

REPORT INFORMATION
  Report Type: Spontaneous
  Country: US (occurrence: US)
  Receive Date: 20190531
  Receipt Date: 20190621
  Transmission Date: 20190711
  Serious: No
  Sender: FDA-Public Use
  Company Number: US-PFIZER INC-2019230544

PATIENT
  Age: 45 Year
  Sex: Male

DRUGS (5)
  1. BACLOFEN. [Concomitant]
     Active Substance: BACLOFEN
     Dosage: 20 MG, UNK
     Dates: start: 201901
  2. FENTANYL CITRATE. [Suspect]
     Active Substance: FENTANYL CITRATE
     Indication: COLITIS ULCERATIVE
     Dosage: 25 UG, UNK, (25 MCG / 72 HRS)
     Dates: start: 201906
  3. FENTANYL CITRATE. [Suspect]
     Active Substance: FENTANYL CITRATE
     Indication: PAIN
  4. OXYCODONE [Concomitant]
     Active Substance: OXYCODONE
     Dosage: 1 DF, AS NEEDED,(TWO TIMES A DAY)
     Dates: start: 201901
  5. FENTANYL CITRATE. [Suspect]
     Active Substance: FENTANYL CITRATE
     Indication: BACK INJURY
     Dosage: 12 UG, UNK, (12 MCG / 72 HRS)
     Dates: start: 201905, end: 201906

REACTIONS (1)
  - Drug ineffective [Unknown]

NARRATIVE: CASE EVENT DATE: 201905
